FAERS Safety Report 6800899-5 (Version None)
Quarter: 2010Q2

REPORT INFORMATION
  Report Type: 
  Country: None (occurrence: None)
  Receive Date: 20100629
  Receipt Date: 20100616
  Transmission Date: 20101027
  Serious: Yes (Other)
  Sender: FDA-Public Use
  Company Number: PHHY2010CA02676

PATIENT
  Sex: Female

DRUGS (1)
  1. SANDOSTATIN LAR [Suspect]
     Indication: CROHN'S DISEASE
     Dosage: 30 MG, QMO
     Route: 030
     Dates: start: 20060315

REACTIONS (10)
  - ABDOMINAL ADHESIONS [None]
  - ABDOMINAL PAIN [None]
  - COUGH [None]
  - CROHN'S DISEASE [None]
  - FATIGUE [None]
  - HAEMOPTYSIS [None]
  - INCREASED UPPER AIRWAY SECRETION [None]
  - NASOPHARYNGITIS [None]
  - OROPHARYNGEAL PAIN [None]
  - ULCER [None]
